FAERS Safety Report 26105573 (Version 1)
Quarter: 2025Q4

REPORT INFORMATION
  Report Type: Spontaneous
  Country: US (occurrence: US)
  Receive Date: 20251201
  Receipt Date: 20251201
  Transmission Date: 20260118
  Serious: No
  Sender: CSL BEHRING
  Company Number: US-CSL-11976

PATIENT

DRUGS (1)
  1. ANDEMBRY [Suspect]
     Active Substance: GARADACIMAB-GXII
     Route: 065

REACTIONS (2)
  - Nasopharyngitis [Unknown]
  - Discomfort [Unknown]
